FAERS Safety Report 14114371 (Version 1)
Quarter: 2017Q4

REPORT INFORMATION
  Report Type: Spontaneous
  Country: US (occurrence: US)
  Receive Date: 20171023
  Receipt Date: 20171023
  Transmission Date: 20180321
  Serious: No
  Sender: FDA-Public Use
  Company Number: US-PFIZER INC-2017452689

PATIENT
  Age: 52 Year
  Sex: Female
  Weight: 68 kg

DRUGS (10)
  1. GENOTROPIN MQ [Suspect]
     Active Substance: SOMATROPIN
     Dosage: 0.25 ML, DAILY
     Route: 058
     Dates: start: 2013
  2. CHOLECALCIFEROL [Concomitant]
     Active Substance: CHOLECALCIFEROL
     Dosage: 2000 IU, DAILY
     Route: 048
  3. AKA SYNTHROID [Concomitant]
     Dosage: 100 UG, 1X/DAY
     Route: 048
  4. UBIDECARENONE [Concomitant]
     Active Substance: UBIDECARENONE
     Dosage: UNK (COQ-10 ORAL)
     Route: 048
  5. AKA CORTEF [Concomitant]
     Dosage: (TAKE 1 - 1/2 TABLETS (15 MG) IN THE MORNING, 5 MG AT 2-3 PM), 2X/DAY
     Route: 048
  6. MINIVELLE [Concomitant]
     Active Substance: ESTRADIOL
     Dosage: APPLY 1 PATCH TO A CLEAN DRY AREA TWO DAYS EACH WEEK
     Route: 062
  7. TESTOSTERONE. [Concomitant]
     Active Substance: TESTOSTERONE
     Dosage: UNK (APPLY 1 APPLICATION TO AFFECTED AREA THREE DAYS EACH WEEK)
     Route: 061
  8. LECITHIN [Concomitant]
     Active Substance: LECITHIN
     Dosage: UNK
     Route: 048
  9. AKA PROMETRIUM [Concomitant]
     Dosage: 100 MG, DAILY
     Route: 048
  10. CALCIUM [Concomitant]
     Active Substance: CALCIUM
     Dosage: UNK
     Route: 048

REACTIONS (10)
  - Disturbance in attention [Unknown]
  - Visual impairment [Unknown]
  - Myalgia [Unknown]
  - Drug ineffective [Unknown]
  - Muscular weakness [Unknown]
  - Pain in extremity [Unknown]
  - Memory impairment [Unknown]
  - Headache [Unknown]
  - Fatigue [Unknown]
  - Asthenia [Unknown]
